FAERS Safety Report 10256568 (Version 1)
Quarter: 2014Q2

REPORT INFORMATION
  Report Type: Spontaneous
  Country: US (occurrence: US)
  Receive Date: 20140624
  Receipt Date: 20140624
  Transmission Date: 20141212
  Serious: No
  Sender: FDA-Public Use
  Company Number: US-ZOGENIX, INC.-2011ZX000392

PATIENT
  Age: 55 Year
  Sex: Female
  Weight: 49.94 kg

DRUGS (10)
  1. SUMAVEL DOSEPRO [Suspect]
     Indication: MIGRAINE
     Dates: start: 20110723, end: 20110723
  2. SUMAVEL DOSEPRO [Suspect]
  3. OMEPRAZOL                          /00661201/ [Concomitant]
     Indication: ABDOMINAL DISCOMFORT
     Route: 048
  4. DEXLANSOPRAZOLE [Concomitant]
     Indication: ABDOMINAL DISCOMFORT
     Route: 048
  5. METOCLOPRAMIDE [Concomitant]
     Indication: GASTROOESOPHAGEAL REFLUX DISEASE
     Route: 048
  6. DICYCLOMINE                        /00068601/ [Concomitant]
     Indication: MUSCLE SPASMS
     Route: 048
  7. CLONAZEPAN [Concomitant]
     Indication: SLEEP DISORDER
     Route: 048
  8. AMBIEN [Concomitant]
     Indication: SLEEP DISORDER
     Route: 048
  9. ALBUTEROL                          /00139501/ [Concomitant]
     Indication: ASTHMA
     Dosage: DRUG ROUTE: INHALATION
  10. AZMACORT [Concomitant]
     Indication: ASTHMA
     Dosage: DRUG ROUTE: INHALATION

REACTIONS (3)
  - Injection site pain [Recovered/Resolved]
  - Accidental exposure to product [Recovered/Resolved]
  - Device malfunction [Recovered/Resolved]
